FAERS Safety Report 11872238 (Version 1)
Quarter: 2015Q4

REPORT INFORMATION
  Report Type: Report from Study
  Country: JP (occurrence: JP)
  Receive Date: 20151228
  Receipt Date: 20151228
  Transmission Date: 20160305
  Serious: Yes (Other)
  Sender: FDA-Public Use
  Company Number: JP-TAKEDA-2015TUS018672

PATIENT

DRUGS (2)
  1. FIBRINOGEN, THROMBIN [Suspect]
     Active Substance: FIBRINOGEN HUMAN\THROMBIN HUMAN
     Indication: PROPHYLAXIS
     Dosage: UNK
     Route: 065
  2. FIBRINOGEN, THROMBIN [Suspect]
     Active Substance: FIBRINOGEN HUMAN\THROMBIN HUMAN
     Indication: HAEMORRHAGE PROPHYLAXIS

REACTIONS (1)
  - Abdominal infection [Unknown]
